FAERS Safety Report 25810046 (Version 1)
Quarter: 2025Q3

REPORT INFORMATION
  Report Type: Spontaneous
  Country: JP (occurrence: JP)
  Receive Date: 20250917
  Receipt Date: 20250917
  Transmission Date: 20251020
  Serious: Yes (Death, Other)
  Sender: CHEPLAPHARM
  Company Number: JP-CHEPLA-2025010769

PATIENT
  Age: 60 Year
  Sex: Female

DRUGS (40)
  1. GANCICLOVIR [Suspect]
     Active Substance: GANCICLOVIR
     Indication: Cytomegalovirus infection
  2. FOSCARNET [Suspect]
     Active Substance: FOSCARNET
     Indication: Cytomegalovirus infection
  3. METHOTREXATE [Suspect]
     Active Substance: METHOTREXATE
     Indication: Rheumatoid arthritis
  4. METHOTREXATE [Suspect]
     Active Substance: METHOTREXATE
     Indication: Rheumatoid arthritis
  5. PREDNISOLONE [Suspect]
     Active Substance: PREDNISOLONE
     Indication: Arthritis
  6. PREDNISOLONE [Suspect]
     Active Substance: PREDNISOLONE
     Indication: Rheumatoid arthritis
  7. PREDNISOLONE [Suspect]
     Active Substance: PREDNISOLONE
     Indication: Vasculitis
  8. PREDNISOLONE [Suspect]
     Active Substance: PREDNISOLONE
     Indication: Arthritis
     Dosage: PSL DOSE WAS RAPIDLY TAPERED FROM 30 MG/DAY TO 10 MG/?DAY?DAILY DOSE: 30 MILLIGRAM
  9. PREDNISOLONE [Suspect]
     Active Substance: PREDNISOLONE
     Indication: Rheumatoid arthritis
     Dosage: PSL DOSE WAS RAPIDLY TAPERED FROM 30 MG/DAY TO 10 MG/?DAY?DAILY DOSE: 30 MILLIGRAM
  10. PREDNISOLONE [Suspect]
     Active Substance: PREDNISOLONE
     Indication: Vasculitis
     Dosage: PSL DOSE WAS RAPIDLY TAPERED FROM 30 MG/DAY TO 10 MG/?DAY?DAILY DOSE: 30 MILLIGRAM
  11. PREDNISOLONE [Suspect]
     Active Substance: PREDNISOLONE
     Indication: Arthritis
     Dosage: PSL DOSE WAS RAPIDLY TAPERED FROM 30 MG/DAY TO 10 MG/?DAY?DAILY DOSE: 10 MILLIGRAM
  12. PREDNISOLONE [Suspect]
     Active Substance: PREDNISOLONE
     Indication: Rheumatoid arthritis
     Dosage: PSL DOSE WAS RAPIDLY TAPERED FROM 30 MG/DAY TO 10 MG/?DAY?DAILY DOSE: 10 MILLIGRAM
  13. PREDNISOLONE [Suspect]
     Active Substance: PREDNISOLONE
     Indication: Vasculitis
     Dosage: PSL DOSE WAS RAPIDLY TAPERED FROM 30 MG/DAY TO 10 MG/?DAY?DAILY DOSE: 10 MILLIGRAM
  14. PREDNISOLONE [Suspect]
     Active Substance: PREDNISOLONE
     Indication: Arthritis
     Dosage: REDUCED TO 6 MG/DAY?DAILY DOSE: 6 MILLIGRAM
  15. PREDNISOLONE [Suspect]
     Active Substance: PREDNISOLONE
     Indication: Rheumatoid arthritis
     Dosage: REDUCED TO 6 MG/DAY?DAILY DOSE: 6 MILLIGRAM
  16. PREDNISOLONE [Suspect]
     Active Substance: PREDNISOLONE
     Indication: Vasculitis
     Dosage: REDUCED TO 6 MG/DAY?DAILY DOSE: 6 MILLIGRAM
  17. PREDNISOLONE [Suspect]
     Active Substance: PREDNISOLONE
     Indication: Arthritis
  18. PREDNISOLONE [Suspect]
     Active Substance: PREDNISOLONE
     Indication: Rheumatoid arthritis
  19. PREDNISOLONE [Suspect]
     Active Substance: PREDNISOLONE
     Indication: Vasculitis
  20. PREDNISOLONE [Suspect]
     Active Substance: PREDNISOLONE
     Indication: Arthritis
     Dosage: DAILY DOSE: 40 MILLIGRAM
  21. PREDNISOLONE [Suspect]
     Active Substance: PREDNISOLONE
     Indication: Rheumatoid arthritis
     Dosage: DAILY DOSE: 40 MILLIGRAM
  22. PREDNISOLONE [Suspect]
     Active Substance: PREDNISOLONE
     Indication: Vasculitis
     Dosage: DAILY DOSE: 40 MILLIGRAM
  23. PREDNISOLONE [Suspect]
     Active Substance: PREDNISOLONE
     Indication: Arthritis
     Dosage: PSL DOSE WAS TAPERED?TO 15 MG/DAY?DAILY DOSE: 15 MILLIGRAM
  24. PREDNISOLONE [Suspect]
     Active Substance: PREDNISOLONE
     Indication: Rheumatoid arthritis
     Dosage: PSL DOSE WAS TAPERED?TO 15 MG/DAY?DAILY DOSE: 15 MILLIGRAM
  25. PREDNISOLONE [Suspect]
     Active Substance: PREDNISOLONE
     Indication: Vasculitis
     Dosage: PSL DOSE WAS TAPERED?TO 15 MG/DAY?DAILY DOSE: 15 MILLIGRAM
  26. PREDNISOLONE [Suspect]
     Active Substance: PREDNISOLONE
     Indication: Arthritis
  27. PREDNISOLONE [Suspect]
     Active Substance: PREDNISOLONE
     Indication: Rheumatoid arthritis
  28. PREDNISOLONE [Suspect]
     Active Substance: PREDNISOLONE
     Indication: Vasculitis
  29. TACROLIMUS [Suspect]
     Active Substance: TACROLIMUS
     Indication: Rheumatoid arthritis
     Dosage: DAILY DOSE: 1 MILLIGRAM
  30. TACROLIMUS [Suspect]
     Active Substance: TACROLIMUS
     Indication: Rheumatoid arthritis
  31. AZATHIOPRINE [Suspect]
     Active Substance: AZATHIOPRINE
     Dosage: DAILY DOSE: 50 MILLIGRAM
  32. MEROPENEM [Suspect]
     Active Substance: MEROPENEM
  33. VANCOMYCIN [Suspect]
     Active Substance: VANCOMYCIN
  34. AMPICILLIN [Suspect]
     Active Substance: AMPICILLIN
  35. MINOCYCLINE [Suspect]
     Active Substance: MINOCYCLINE HYDROCHLORIDE
  36. ACYCLOVIR [Suspect]
     Active Substance: ACYCLOVIR
  37. AMPHOTERICIN B [Suspect]
     Active Substance: AMPHOTERICIN B
  38. METHYLPREDNISOLONE [Suspect]
     Active Substance: METHYLPREDNISOLONE
     Indication: Disseminated intravascular coagulation
     Dosage: HIGH-DOSE ?DAILY DOSE: 1 GRAM
  39. METHYLPREDNISOLONE [Suspect]
     Active Substance: METHYLPREDNISOLONE
     Indication: Cytokine storm
     Dosage: HIGH-DOSE ?DAILY DOSE: 1 GRAM
  40. METHYLPREDNISOLONE [Suspect]
     Active Substance: METHYLPREDNISOLONE
     Indication: Haemophagocytic lymphohistiocytosis
     Dosage: HIGH-DOSE ?DAILY DOSE: 1 GRAM

REACTIONS (4)
  - Haematochezia [Unknown]
  - Multiple organ dysfunction syndrome [Fatal]
  - Condition aggravated [Fatal]
  - Drug ineffective [Unknown]
